FAERS Safety Report 8343172-9 (Version None)
Quarter: 2012Q2

REPORT INFORMATION
  Report Type: 
  Country: None (occurrence: None)
  Receive Date: 20120503
  Receipt Date: 20120418
  Transmission Date: 20120825
  Serious: Yes (Other)
  Sender: FDA-Public Use
  Company Number: 2011-4894

PATIENT
  Age: 62 Year
  Sex: Male

DRUGS (3)
  1. POTASSIUM CHLORIDE [Concomitant]
  2. SOMATULINE DEPOT [Suspect]
     Indication: PRODUCT USED FOR UNKNOWN INDICATION
     Dosage: 30 MG (30 MG, ONCE), INTRAMUSCULAR
     Route: 030
     Dates: start: 20111109, end: 20111109
  3. XATRAL LP (ALFUZOSIN) [Concomitant]

REACTIONS (1)
  - NEUTROPENIA [None]
